FAERS Safety Report 9731289 (Version 3)
Quarter: 2013Q4

REPORT INFORMATION
  Report Type: Spontaneous
  Country: US (occurrence: US)
  Receive Date: 20131203
  Receipt Date: 20131220
  Transmission Date: 20140711
  Serious: Yes (Other)
  Sender: FDA-Public Use
  Company Number: US-BAYER-2013-145702

PATIENT
  Age: 33 Year
  Sex: Female

DRUGS (1)
  1. MIRENA [Suspect]
     Indication: CONTRACEPTION
     Dosage: 20 MCG/24HR, CONT
     Route: 015
     Dates: start: 20130924, end: 20130924

REACTIONS (6)
  - Procedural haemorrhage [None]
  - Procedural pain [None]
  - Malaise [None]
  - Dizziness [None]
  - Device expulsion [None]
  - Device difficult to use [None]
